FAERS Safety Report 15557982 (Version 3)
Quarter: 2018Q4

REPORT INFORMATION
  Report Type: Report from Study
  Country: US (occurrence: US)
  Receive Date: 20181027
  Receipt Date: 20181206
  Transmission Date: 20190205
  Serious: Yes (Hospitalization, Other)
  Sender: FDA-Public Use
  Company Number: US-009507513-1810USA008769

PATIENT
  Age: 18 Year
  Sex: Female
  Weight: 101.13 kg

DRUGS (3)
  1. IMPLANON [Suspect]
     Active Substance: ETONOGESTREL
     Indication: CONTRACEPTION
     Dosage: 1 DOSAGE FORM EVERY 3 YEARS
     Route: 059
     Dates: start: 201510, end: 20181010
  2. IMPLANON [Suspect]
     Active Substance: ETONOGESTREL
     Dosage: 1 DOSAGE FORM EVERY 3 YEARS
     Route: 059
     Dates: start: 20181010, end: 20181018
  3. IMPLANON [Suspect]
     Active Substance: ETONOGESTREL
     Dosage: 1 DOSAGE FORM EVERY 3 YEARS
     Route: 059
     Dates: start: 20181031

REACTIONS (14)
  - Mental disorder [Unknown]
  - Device dislocation [Recovered/Resolved]
  - Device kink [Recovered/Resolved]
  - Amenorrhoea [Unknown]
  - Affective disorder [Unknown]
  - Anxiety disorder [Unknown]
  - Tonsillar disorder [Unknown]
  - Asthma [Unknown]
  - Adverse event [Unknown]
  - Depression [Unknown]
  - Obesity [Not Recovered/Not Resolved]
  - Intentional self-injury [Recovered/Resolved]
  - Implant site pain [Unknown]
  - Adenoidal disorder [Unknown]

NARRATIVE: CASE EVENT DATE: 2015
